FAERS Safety Report 8740379 (Version 2)
Quarter: 2013Q4

REPORT INFORMATION
  Report Type: Spontaneous
  Country: US (occurrence: US)
  Receive Date: 20120823
  Receipt Date: 20131101
  Transmission Date: 20140711
  Serious: No
  Sender: FDA-Public Use
  Company Number: US-009507513-1208USA004791

PATIENT
  Sex: Female

DRUGS (3)
  1. COZAAR [Suspect]
     Indication: BLOOD PRESSURE MANAGEMENT
     Dosage: 25 MG, QD
     Route: 048
  2. LASIX (FUROSEMIDE) [Concomitant]
  3. BETAPACE [Concomitant]

REACTIONS (2)
  - Allergy to chemicals [Unknown]
  - Rash [Recovered/Resolved]
